FAERS Safety Report 6918148-6 (Version None)
Quarter: 2010Q3

REPORT INFORMATION
  Report Type: 
  Country: None (occurrence: None)
  Receive Date: 20100810
  Receipt Date: 20100803
  Transmission Date: 20110219
  Serious: Yes (Other)
  Sender: FDA-Public Use
  Company Number: US-AMGEN-QUU428883

PATIENT
  Sex: Female
  Weight: 111.2 kg

DRUGS (2)
  1. NPLATE [Suspect]
     Indication: IDIOPATHIC THROMBOCYTOPENIC PURPURA
     Dates: start: 20090714, end: 20100126
  2. CELLCEPT [Concomitant]
     Dates: start: 20080924

REACTIONS (4)
  - MULTIMORBIDITY [None]
  - THERAPEUTIC RESPONSE DECREASED [None]
  - THROMBOCYTOPENIA [None]
  - THROMBOSIS [None]
